FAERS Safety Report 7019314-4 (Version None)
Quarter: 2010Q3

REPORT INFORMATION
  Report Type: 
  Country: None (occurrence: None)
  Receive Date: 20100922
  Receipt Date: 20100909
  Transmission Date: 20110219
  Serious: Yes (Life-Threatening, Other)
  Sender: FDA-Public Use
  Company Number: 2010MA002554

PATIENT
  Age: 19 Year
  Sex: Female

DRUGS (14)
  1. ACYCLOVIR [Suspect]
  2. FEVERALL [Suspect]
     Dosage: IV
     Route: 042
  3. PAREGORIC LIQUID USP (ALPHARMA) (PAREGORIC) [Suspect]
     Route: 042
  4. ONDANSETRON [Suspect]
     Dosage: 8 MG;TID;IV
     Route: 042
  5. OMEPRAZOLE [Suspect]
  6. CYCLOSPORINE [Suspect]
  7. ALLOPURINOL [Suspect]
     Dosage: 300 MG;QD;PO
     Route: 048
  8. VORICONAZOLE [Suspect]
     Dosage: 200 MG;BID;PO
  9. NORETHISTERONE (NORETHISTERONE) [Suspect]
     Dosage: 5 MG;TID;PO
     Route: 048
  10. CASPOFUNGIN ACETATE [Suspect]
     Dosage: 70 MG;QD;IV
     Route: 042
  11. ETOPOPHOS PRESERVATIVE FREE [Suspect]
     Dosage: 4656 MG
     Dates: start: 20070915
  12. CHLORPHENIRAMINE MALEATE [Suspect]
     Dosage: 10 MGLQID;IV
     Route: 042
  13. PIPERACILLIN AND TAZOBACTAM [Suspect]
     Dosage: 4.5 MG;TID;IV
     Route: 042
  14. KETALAR [Suspect]
     Indication: PAIN
     Dosage: 4 MG;QH;IV
     Route: 042
     Dates: start: 20070921, end: 20070928

REACTIONS (7)
  - ALANINE AMINOTRANSFERASE INCREASED [None]
  - BLOOD ALKALINE PHOSPHATASE INCREASED [None]
  - BLOOD BILIRUBIN INCREASED [None]
  - DILATATION INTRAHEPATIC DUCT ACQUIRED [None]
  - HEPATOTOXICITY [None]
  - LIVER FUNCTION TEST ABNORMAL [None]
  - VENOOCCLUSIVE DISEASE [None]
